FAERS Safety Report 13194052 (Version 1)
Quarter: 2017Q1

REPORT INFORMATION
  Report Type: Spontaneous
  Country: US (occurrence: US)
  Receive Date: 20170207
  Receipt Date: 20170207
  Transmission Date: 20170428
  Serious: Yes (Other)
  Sender: FDA-Public Use
  Company Number: US-VALIDUS PHARMACEUTICALS LLC-US-2016VAL000484

PATIENT
  Age: 42 Year
  Sex: Male

DRUGS (1)
  1. EQUETRO [Suspect]
     Active Substance: CARBAMAZEPINE
     Indication: PRODUCT USED FOR UNKNOWN INDICATION
     Dosage: 200 MG, (2 IN THE MORNING AND 2 IN THE NIGHT)

REACTIONS (6)
  - Dizziness [Unknown]
  - Somnolence [Unknown]
  - Vision blurred [Unknown]
  - Dysgeusia [Unknown]
  - Nausea [Unknown]
  - Dysarthria [Unknown]
